FAERS Safety Report 16629032 (Version 2)
Quarter: 2019Q3

REPORT INFORMATION
  Report Type: Report from Study
  Country: JP (occurrence: JP)
  Receive Date: 20190725
  Receipt Date: 20190806
  Transmission Date: 20191004
  Serious: Yes (Life-Threatening, Hospitalization, Disabling, Other)
  Sender: FDA-Public Use
  Company Number: JP-ASTELLAS-2018JP024939

PATIENT
  Age: 12 Year
  Sex: Female
  Weight: 29 kg

DRUGS (30)
  1. ASP2215 [Suspect]
     Active Substance: GILTERITINIB
     Route: 048
     Dates: start: 20190226, end: 20190303
  2. CEFAZOLIN SODIUM. [Concomitant]
     Active Substance: CEFAZOLIN SODIUM
     Indication: DEVICE RELATED INFECTION
     Dosage: 1.5 MG/DAY, UNKNOWN FREQ.
     Route: 065
     Dates: start: 20190201, end: 20190204
  3. VANCOMYCIN HYDROCHLORIDE. [Concomitant]
     Active Substance: VANCOMYCIN HYDROCHLORIDE
     Indication: DEVICE RELATED INFECTION
     Dosage: 0.48-1.2 MG/DAY, UNKNOWN FREQ.
     Route: 065
     Dates: start: 20190204, end: 20190215
  4. FUNGUARD [Concomitant]
     Active Substance: MICAFUNGIN SODIUM
     Indication: PROPHYLAXIS
     Dosage: UNK UNK, UNKNOWN FREQ.
     Route: 041
  5. ASP2215 [Suspect]
     Active Substance: GILTERITINIB
     Route: 048
     Dates: start: 20190515, end: 20190516
  6. ASP2215 [Suspect]
     Active Substance: GILTERITINIB
     Route: 048
     Dates: start: 20190625
  7. CALONAL [Concomitant]
     Active Substance: ACETAMINOPHEN
     Indication: CENTRAL VENOUS CATHETERISATION
     Dosage: UNK UNK, UNKNOWN FREQ.
     Route: 065
     Dates: start: 20190325
  8. VENETLIN [Concomitant]
     Active Substance: ALBUTEROL SULFATE
     Indication: COUGH
     Dosage: 6-8 ML/DAY, UNKNOWN FREQ.
     Route: 065
     Dates: start: 20190508, end: 20190512
  9. ASP2215 [Suspect]
     Active Substance: GILTERITINIB
     Route: 048
     Dates: start: 20190330, end: 20190411
  10. MAGNESIUM OXIDE. [Concomitant]
     Active Substance: MAGNESIUM OXIDE
     Indication: CONSTIPATION
     Dosage: 1.5 G/DAY, UNKNOWN FREQ.
     Route: 048
     Dates: start: 20190228, end: 20190306
  11. CALONAL [Concomitant]
     Active Substance: ACETAMINOPHEN
     Indication: PROPHYLAXIS
     Route: 048
     Dates: start: 20190507
  12. AUGMENTIN [Concomitant]
     Active Substance: AMOXICILLIN\CLAVULANATE POTASSIUM
     Indication: COUGH
     Dosage: 6 TABLETS/DAY, UNKNOWN FREQ.
     Route: 048
     Dates: start: 20190507, end: 20190510
  13. SODIUM PICOSULFATE [Concomitant]
     Active Substance: SODIUM PICOSULFATE
     Indication: ABDOMINAL PAIN
     Dosage: 6 DROPS, ONCE DAILY
     Route: 048
     Dates: start: 20190515, end: 20190515
  14. ASP2215 [Suspect]
     Active Substance: GILTERITINIB
     Indication: ACUTE MYELOID LEUKAEMIA RECURRENT
     Route: 048
     Dates: start: 20181228, end: 20190128
  15. CYLOCIDE [Concomitant]
     Active Substance: CYTARABINE
     Indication: ACUTE MYELOID LEUKAEMIA
     Route: 065
  16. CALONAL [Concomitant]
     Active Substance: ACETAMINOPHEN
     Indication: PRODUCT USED FOR UNKNOWN INDICATION
     Route: 048
     Dates: start: 20190201, end: 20190207
  17. VANCOMYCIN HYDROCHLORIDE. [Concomitant]
     Active Substance: VANCOMYCIN HYDROCHLORIDE
     Dosage: 0.3-1.2 MG/DAY, UNKNOWN FREQ.
     Route: 065
     Dates: start: 20190302, end: 20190315
  18. PROGRAF [Concomitant]
     Active Substance: TACROLIMUS\TACROLIMUS ANHYDROUS
     Indication: BONE MARROW TRANSPLANT REJECTION
     Dosage: 1 MG/DAY, UNKNOWN FREQ.
     Route: 048
  19. ASP2215 [Suspect]
     Active Substance: GILTERITINIB
     Indication: ACUTE MYELOID LEUKAEMIA
     Route: 048
     Dates: start: 20190131, end: 20190223
  20. ASP2215 [Suspect]
     Active Substance: GILTERITINIB
     Route: 048
     Dates: start: 20190412, end: 20190424
  21. SOLU-CORTEF [Suspect]
     Active Substance: HYDROCORTISONE SODIUM SUCCINATE
     Indication: PRODUCT USED FOR UNKNOWN INDICATION
     Dosage: UNK UNK, UNKNOWN FREQ.
     Route: 065
  22. CEFEPIME HYDROCHLORIDE. [Concomitant]
     Active Substance: CEFEPIME HYDROCHLORIDE
     Indication: DEVICE RELATED INFECTION
     Dosage: 4 G/DAY, UNKNOWN FREQ.
     Route: 065
     Dates: start: 20190303, end: 20190308
  23. ACETAMINOPHEN. [Concomitant]
     Active Substance: ACETAMINOPHEN
     Indication: PROPHYLAXIS
  24. PRIMPERAN [Concomitant]
     Active Substance: METOCLOPRAMIDE HYDROCHLORIDE
     Indication: ANAEMIA
     Dosage: 6 MG/DAY, UNKNOWN FREQ.
     Route: 065
     Dates: start: 20190509, end: 20190509
  25. ASP2215 [Suspect]
     Active Substance: GILTERITINIB
     Route: 048
     Dates: start: 20190304, end: 20190327
  26. ASP2215 [Suspect]
     Active Substance: GILTERITINIB
     Route: 048
     Dates: start: 20190427, end: 20190512
  27. METHOTREXATE. [Concomitant]
     Active Substance: METHOTREXATE
     Indication: ACUTE MYELOID LEUKAEMIA
     Route: 065
  28. PROGRAF [Concomitant]
     Active Substance: TACROLIMUS\TACROLIMUS ANHYDROUS
     Indication: GRAFT VERSUS HOST DISEASE
  29. CALONAL [Concomitant]
     Active Substance: ACETAMINOPHEN
     Indication: PAIN
  30. ACETAMINOPHEN. [Concomitant]
     Active Substance: ACETAMINOPHEN
     Indication: TOOTH EXTRACTION
     Dosage: 900 MG/DAY, UNKNOWN FREQ.
     Route: 042
     Dates: start: 20190507, end: 20190507

REACTIONS (12)
  - Plantar erythema [Unknown]
  - Transaminases increased [Recovered/Resolved]
  - Central venous catheterisation [Recovered/Resolved]
  - Cough [Recovering/Resolving]
  - Tooth extraction [Recovered/Resolved]
  - Constipation [Recovering/Resolving]
  - Feeling abnormal [Recovered/Resolved]
  - Face oedema [Recovering/Resolving]
  - Anaemia [Recovering/Resolving]
  - Abdominal pain [Not Recovered/Not Resolved]
  - Off label use [Unknown]
  - Device related infection [Recovering/Resolving]

NARRATIVE: CASE EVENT DATE: 20190104
